FAERS Safety Report 16153785 (Version 6)
Quarter: 2020Q3

REPORT INFORMATION
  Report Type: Spontaneous
  Country: US (occurrence: US)
  Receive Date: 20190403
  Receipt Date: 20200925
  Transmission Date: 20201102
  Serious: No
  Sender: FDA-Public Use
  Company Number: US-PFIZER INC-2019139782

PATIENT
  Age: 45 Year
  Sex: Male

DRUGS (3)
  1. LYRICA [Suspect]
     Active Substance: PREGABALIN
     Indication: NEURALGIA
  2. LYRICA [Suspect]
     Active Substance: PREGABALIN
     Indication: PAIN
     Dosage: 75 MG, 3X/DAY
     Route: 048
  3. LYRICA [Suspect]
     Active Substance: PREGABALIN
     Indication: ARTHRALGIA
     Dosage: 225 MG, 3X/DAY (TAKE 75MG 3 CAPSULES BY MOUTH THREE TIMES A DAY)
     Route: 048

REACTIONS (3)
  - Therapeutic response unexpected [Unknown]
  - Prescribed overdose [Unknown]
  - Hypoacusis [Unknown]

NARRATIVE: CASE EVENT DATE: 201305
